FAERS Safety Report 10017396 (Version 2)
Quarter: 2014Q2

REPORT INFORMATION
  Report Type: Spontaneous
  Country: US (occurrence: US)
  Receive Date: 20140318
  Receipt Date: 20140403
  Transmission Date: 20141212
  Serious: No
  Sender: FDA-Public Use
  Company Number: US-PFIZER INC-2014073778

PATIENT
  Age: 68 Year
  Sex: Female

DRUGS (5)
  1. CIPROFLOXACIN [Suspect]
     Dosage: UNK
  2. DOXYCYCLINE CALCIUM [Suspect]
     Dosage: UNK
  3. ERYTHROMYCIN [Suspect]
     Dosage: UNK
  4. LORACARBEF [Suspect]
     Dosage: UNK
  5. MUPIROCIN [Suspect]
     Dosage: UNK

REACTIONS (1)
  - Drug hypersensitivity [Unknown]
